APPROVED DRUG PRODUCT: CLINDAMYCIN PALMITATE HYDROCHLORIDE
Active Ingredient: CLINDAMYCIN PALMITATE HYDROCHLORIDE
Strength: EQ 75MG BASE/5ML
Dosage Form/Route: FOR SOLUTION;ORAL
Application: A203063 | Product #001
Applicant: EXTROVIS AG
Approved: May 25, 2016 | RLD: No | RS: No | Type: DISCN